FAERS Safety Report 23529432 (Version 1)
Quarter: 2024Q1

REPORT INFORMATION
  Report Type: Other
  Country: US (occurrence: None)
  Receive Date: 20240216
  Receipt Date: 20240216
  Transmission Date: 20240410
  Serious: Yes (Other)
  Sender: FDA-Public Use
  Company Number: US-ROCHE-3508047

PATIENT
  Age: 44 Year
  Sex: Male
  Weight: 95.34 kg

DRUGS (12)
  1. OCREVUS [Suspect]
     Active Substance: OCRELIZUMAB
     Indication: Primary progressive multiple sclerosis
     Route: 042
  2. BACLOFEN [Concomitant]
     Active Substance: BACLOFEN
  3. CHOLECALCIFEROL [Concomitant]
     Active Substance: CHOLECALCIFEROL
  4. VALIUM [Concomitant]
     Active Substance: DIAZEPAM
  5. DIPHENHYDRAMINE HYDROCHLORIDE [Concomitant]
     Active Substance: DIPHENHYDRAMINE HYDROCHLORIDE
  6. ERGOCALCIFEROL [Concomitant]
     Active Substance: ERGOCALCIFEROL
  7. NEURONTIN [Concomitant]
     Active Substance: GABAPENTIN
  8. LINZESS [Concomitant]
     Active Substance: LINACLOTIDE
  9. SOLU-MEDROL [Concomitant]
     Active Substance: METHYLPREDNISOLONE SODIUM SUCCINATE
  10. POLYETHYLENE GLYCOL [Concomitant]
     Active Substance: POLYETHYLENE GLYCOL
  11. ROPINIROLE [Concomitant]
     Active Substance: ROPINIROLE
  12. VILAZODONE [Concomitant]
     Active Substance: VILAZODONE

REACTIONS (2)
  - Fall [Unknown]
  - Hip fracture [Recovered/Resolved]
